FAERS Safety Report 4694331-8 (Version None)
Quarter: 2005Q2

REPORT INFORMATION
  Report Type: 
  Country: None (occurrence: None)
  Receive Date: 20050614
  Receipt Date: 20050301
  Transmission Date: 20051028
  Serious: No
  Sender: FDA-Public Use
  Company Number: USA050392106

PATIENT
  Sex: Male

DRUGS (4)
  1. CIALIS [Suspect]
     Dosage: 20 MG DAY
     Dates: start: 20040101
  2. LOVASTATIN [Concomitant]
  3. COZAAR [Concomitant]
  4. MICRONACE (GENERIC) [Concomitant]

REACTIONS (4)
  - HYPERCHLORHYDRIA [None]
  - NASAL CONGESTION [None]
  - SEMEN VOLUME DECREASED [None]
  - THERAPEUTIC RESPONSE DECREASED [None]
